FAERS Safety Report 23130095 (Version 9)
Quarter: 2024Q2

REPORT INFORMATION
  Report Type: Report from Study
  Country: US (occurrence: US)
  Receive Date: 20231031
  Receipt Date: 20240426
  Transmission Date: 20240716
  Serious: Yes (Life-Threatening, Hospitalization, Other)
  Sender: FDA-Public Use
  Company Number: US-ARGENX-2022-ARGX-US002687

PATIENT

DRUGS (36)
  1. VYVGART [Suspect]
     Active Substance: EFGARTIGIMOD ALFA-FCAB
     Indication: Myasthenia gravis
     Dosage: 500 MG, 1/WEEK FRO 4 WEEKS
     Route: 042
     Dates: start: 20221204
  2. VYVGART [Suspect]
     Active Substance: EFGARTIGIMOD ALFA-FCAB
     Dosage: 500 MG, 1/WEEK, WEEKLY FOR 4 WEEKS THEN Q8W
     Route: 042
     Dates: start: 20221204
  3. VYVGART [Suspect]
     Active Substance: EFGARTIGIMOD ALFA-FCAB
     Dosage: 500 MG, 1/WEEK, WEEKLY FOR 4 WEEKS
     Route: 042
     Dates: start: 20221204
  4. VYVGART [Suspect]
     Active Substance: EFGARTIGIMOD ALFA-FCAB
     Dosage: 500 MG, 1/WEEK, WEEKLY FOR 4 WEEKS
     Route: 042
     Dates: start: 20221204
  5. VYVGART [Suspect]
     Active Substance: EFGARTIGIMOD ALFA-FCAB
     Dosage: 500 MG, 1/WEEK FOR 4 WEEKS
     Route: 042
     Dates: start: 20221204
  6. VYVGART [Suspect]
     Active Substance: EFGARTIGIMOD ALFA-FCAB
     Dosage: 500 MG, 1/WEEK FOR 4 WEEKS
     Route: 042
     Dates: start: 20221204
  7. VYVGART [Suspect]
     Active Substance: EFGARTIGIMOD ALFA-FCAB
     Dosage: 500 MG, Q4WEEKS
     Route: 042
     Dates: start: 20221204
  8. VYVGART [Suspect]
     Active Substance: EFGARTIGIMOD ALFA-FCAB
     Dosage: 500 MG, WEEKLY FOR 4 WEEKS/UD
     Route: 042
     Dates: start: 20221204
  9. VYVGART [Suspect]
     Active Substance: EFGARTIGIMOD ALFA-FCAB
     Dosage: 500 MG, EVERY 8 WEEKS, VYVGAR T 400 MG SDV/INJ 20 ML
     Route: 042
  10. VYVGART [Suspect]
     Active Substance: EFGARTIGIMOD ALFA-FCAB
     Dosage: 500 MG, 1/WEEK, VYVGAR T 400 MG SDV/INJ 20 ML
     Route: 042
     Dates: start: 20221204
  11. VYVGART [Suspect]
     Active Substance: EFGARTIGIMOD ALFA-FCAB
     Dosage: 500 MG, 1/WEEK, 400 MG SDV/INJ 20 ML
     Route: 042
     Dates: start: 20221204
  12. Diphenhydramine hydrochloroide [Concomitant]
     Indication: Product used for unknown indication
     Dosage: UNK
     Route: 065
  13. SODIUM CHLORIDE [Concomitant]
     Active Substance: SODIUM CHLORIDE
     Indication: Product used for unknown indication
     Dosage: UNK
     Route: 042
  14. EPINEPHRINE [Concomitant]
     Active Substance: EPINEPHRINE
     Indication: Product used for unknown indication
     Dosage: UNK, AUTO INJECTOR
     Route: 065
  15. IMITREX [Concomitant]
     Active Substance: SUMATRIPTAN SUCCINATE
     Indication: Product used for unknown indication
     Dosage: UNK
     Route: 065
  16. SERTRALINE HYDROCHLORIDE [Concomitant]
     Active Substance: SERTRALINE HYDROCHLORIDE
     Indication: Product used for unknown indication
     Dosage: UNK
     Route: 065
  17. AIMOVIG [Concomitant]
     Active Substance: ERENUMAB-AOOE
     Indication: Product used for unknown indication
     Dosage: UNK, AUTO INJECTOR
     Route: 065
  18. VITAMINS [Concomitant]
     Active Substance: VITAMINS
     Indication: Product used for unknown indication
     Dosage: UNK
     Route: 065
  19. CALCIUM\CHOLECALCIFEROL [Concomitant]
     Active Substance: CALCIUM\CHOLECALCIFEROL
     Indication: Product used for unknown indication
     Dosage: UNK, CHEWABLE
     Route: 065
  20. PREDNISONE [Concomitant]
     Active Substance: PREDNISONE
     Indication: Product used for unknown indication
     Dosage: UNK
     Route: 065
  21. FOLIC ACID [Concomitant]
     Active Substance: FOLIC ACID
     Indication: Product used for unknown indication
     Dosage: UNK
     Route: 065
  22. TIZANIDINE [Concomitant]
     Active Substance: TIZANIDINE
     Indication: Product used for unknown indication
     Dosage: UNK
     Route: 065
  23. METHOTREXATE [Concomitant]
     Active Substance: METHOTREXATE
     Indication: Product used for unknown indication
     Dosage: UNK
     Route: 065
  24. VITAMIN B [Concomitant]
     Active Substance: VITAMIN B
     Indication: Product used for unknown indication
     Dosage: UNK
     Route: 065
  25. PYRIDOSTIGMINE BROMIDE [Concomitant]
     Active Substance: PYRIDOSTIGMINE BROMIDE
     Indication: Product used for unknown indication
     Dosage: UNK
     Route: 065
  26. SODIUM CHLORIDE [Concomitant]
     Active Substance: SODIUM CHLORIDE
     Indication: Product used for unknown indication
     Dosage: UNK
     Route: 065
  27. REGLAN [Concomitant]
     Active Substance: METOCLOPRAMIDE HYDROCHLORIDE
     Indication: Product used for unknown indication
     Dosage: UNK
     Route: 065
  28. PANTOPRAZOLE SODIUM [Concomitant]
     Active Substance: PANTOPRAZOLE SODIUM
     Indication: Product used for unknown indication
     Dosage: UNK
     Route: 065
  29. NAPROXEN [Concomitant]
     Active Substance: NAPROXEN
     Indication: Product used for unknown indication
     Dosage: UNK
     Route: 065
  30. VITAMIN D3 [Concomitant]
     Active Substance: CHOLECALCIFEROL
     Indication: Product used for unknown indication
     Dosage: UNK
     Route: 065
  31. AMBIEN [Concomitant]
     Active Substance: ZOLPIDEM TARTRATE
     Indication: Product used for unknown indication
     Dosage: UNK
     Route: 065
  32. TRAZODONE HCL [Concomitant]
     Active Substance: TRAZODONE HYDROCHLORIDE
     Indication: Product used for unknown indication
     Dosage: UNK
     Route: 065
  33. ONDANSETRON HYDROCHLORIDE [Concomitant]
     Active Substance: ONDANSETRON HYDROCHLORIDE
     Indication: Product used for unknown indication
     Dosage: UNK
     Route: 065
  34. PROTONIX [Concomitant]
     Active Substance: PANTOPRAZOLE SODIUM
     Indication: Product used for unknown indication
     Dosage: UNK
     Route: 065
  35. FOLIC ACID [Concomitant]
     Active Substance: FOLIC ACID
     Indication: Product used for unknown indication
     Dosage: UNK
     Route: 065
  36. SODIUM CHLORIDE [Concomitant]
     Active Substance: SODIUM CHLORIDE
     Indication: Product used for unknown indication
     Dosage: UNK
     Route: 065

REACTIONS (65)
  - Dependence on respirator [Unknown]
  - Haematochezia [Unknown]
  - Urinary retention [Unknown]
  - Full blood count abnormal [Unknown]
  - Gastrointestinal haemorrhage [Unknown]
  - Seasonal allergy [Unknown]
  - Stomatitis [Unknown]
  - Insomnia [Unknown]
  - Polyuria [Unknown]
  - Arthralgia [Unknown]
  - Muscle spasms [Unknown]
  - Decreased appetite [Unknown]
  - Fall [Unknown]
  - Bone contusion [Unknown]
  - Diarrhoea [Unknown]
  - Immune system disorder [Unknown]
  - Balance disorder [Unknown]
  - Personality change [Unknown]
  - Myasthenia gravis crisis [Unknown]
  - Seasonal allergy [Unknown]
  - Spinal column injury [Unknown]
  - Tendonitis [Unknown]
  - Pollakiuria [Unknown]
  - Fall [Unknown]
  - Malaise [Unknown]
  - Stress [Unknown]
  - Concussion [Unknown]
  - Dysphagia [Unknown]
  - Muscular weakness [Unknown]
  - Asthenia [Unknown]
  - Decreased appetite [Unknown]
  - Colonoscopy [Unknown]
  - Micturition urgency [Unknown]
  - Pain [Unknown]
  - Aphonia [Unknown]
  - Dysphagia [Unknown]
  - Pain [Unknown]
  - Diarrhoea [Unknown]
  - Pollakiuria [Unknown]
  - Micturition urgency [Unknown]
  - Muscular weakness [Unknown]
  - Pain in extremity [Unknown]
  - Heart rate increased [Unknown]
  - Weight increased [Unknown]
  - Weight decreased [Unknown]
  - Biopsy [Unknown]
  - Product dose omission issue [Unknown]
  - Migraine [Unknown]
  - Nausea [Unknown]
  - Nausea [Unknown]
  - Dizziness [Unknown]
  - Dizziness [Unknown]
  - Fatigue [Unknown]
  - Fatigue [Unknown]
  - Fatigue [Unknown]
  - Headache [Unknown]
  - Headache [Unknown]
  - Dyspnoea [Unknown]
  - Drug ineffective [Unknown]
  - Therapeutic product effect decreased [Unknown]
  - Procedural headache [Unknown]
  - Procedural headache [Unknown]
  - Procedural headache [Unknown]
  - Therapeutic product effect decreased [Unknown]
  - Therapeutic response shortened [Unknown]

NARRATIVE: CASE EVENT DATE: 20230101
